FAERS Safety Report 11948589 (Version 2)
Quarter: 2017Q1

REPORT INFORMATION
  Report Type: Report from Study
  Country: US (occurrence: US)
  Receive Date: 20160125
  Receipt Date: 20170109
  Transmission Date: 20170428
  Serious: Yes (Life-Threatening, Hospitalization)
  Sender: FDA-Public Use
  Company Number: US-BIOGEN-2016BI00177629

PATIENT
  Age: 49 Year
  Sex: Female

DRUGS (1)
  1. TECFIDERA [Suspect]
     Active Substance: DIMETHYL FUMARATE
     Indication: MULTIPLE SCLEROSIS
     Dosage: STARTING DOSE
     Route: 048
     Dates: start: 20151103

REACTIONS (8)
  - Device issue [Unknown]
  - Blood test abnormal [Recovered/Resolved]
  - Cognitive disorder [Not Recovered/Not Resolved]
  - Urinary tract infection [Unknown]
  - Migraine [Recovered/Resolved]
  - Heart rate abnormal [Recovered/Resolved]
  - Pulmonary hypertension [Recovered/Resolved]
  - Chronic obstructive pulmonary disease [Recovered/Resolved]

NARRATIVE: CASE EVENT DATE: 20161231
